FAERS Safety Report 20231363 (Version 1)
Quarter: 2021Q4

REPORT INFORMATION
  Report Type: Spontaneous
  Country: US (occurrence: US)
  Receive Date: 20211227
  Receipt Date: 20211227
  Transmission Date: 20220303
  Serious: No
  Sender: FDA-Public Use
  Company Number: US-ELI_LILLY_AND_COMPANY-US202112010886

PATIENT
  Sex: Male

DRUGS (3)
  1. TRULICITY [Suspect]
     Active Substance: DULAGLUTIDE
     Indication: Type 2 diabetes mellitus
     Dosage: 0.75 MG, WEEKLY (1/W)
     Route: 065
     Dates: start: 202107
  2. IMODIUM [Concomitant]
     Active Substance: LOPERAMIDE HYDROCHLORIDE
     Indication: Infrequent bowel movements
     Dosage: UNK UNK, BID
     Route: 065
  3. IMODIUM [Concomitant]
     Active Substance: LOPERAMIDE HYDROCHLORIDE
     Dosage: UNK UNK, DAILY
     Route: 065

REACTIONS (8)
  - Back pain [Unknown]
  - Pain [Unknown]
  - Abdominal rigidity [Unknown]
  - Tenderness [Unknown]
  - Increased appetite [Unknown]
  - Dyspepsia [Unknown]
  - Nausea [Unknown]
  - Abdominal pain upper [Unknown]
